FAERS Safety Report 8268955-5 (Version None)
Quarter: 2012Q2

REPORT INFORMATION
  Report Type: 
  Country: None (occurrence: None)
  Receive Date: 20120409
  Receipt Date: 20120329
  Transmission Date: 20120825
  Serious: Yes (Other)
  Sender: FDA-Public Use
  Company Number: US-ASTRAZENECA-2012SE21099

PATIENT
  Age: 61 Year
  Sex: Female
  Weight: 74.8 kg

DRUGS (2)
  1. NEXIUM [Suspect]
     Indication: GASTROOESOPHAGEAL REFLUX DISEASE
     Dosage: UNKNOWN DOSE DAILY
     Route: 048
  2. PREVACID [Concomitant]

REACTIONS (1)
  - BREAST CANCER [None]
